FAERS Safety Report 6985253-8 (Version None)
Quarter: 2010Q3

REPORT INFORMATION
  Report Type: 
  Country: None (occurrence: None)
  Receive Date: 20100915
  Receipt Date: 20100906
  Transmission Date: 20110219
  Serious: No
  Sender: FDA-Public Use
  Company Number: RU-US-EMD SERONO, INC.-7016935

PATIENT
  Sex: Male

DRUGS (1)
  1. REBIF [Suspect]
     Indication: MULTIPLE SCLEROSIS
     Route: 058
     Dates: start: 20100301, end: 20100801

REACTIONS (1)
  - NEOPLASM MALIGNANT [None]
